FAERS Safety Report 14227416 (Version 2)
Quarter: 2018Q2

REPORT INFORMATION
  Report Type: Report from Study
  Country: US (occurrence: US)
  Receive Date: 20171127
  Receipt Date: 20180514
  Transmission Date: 20180711
  Serious: Yes (Hospitalization, Other)
  Sender: FDA-Public Use
  Company Number: US-BAYER-2017-203939

PATIENT
  Age: 56 Year
  Sex: Male

DRUGS (2)
  1. NEXAVAR [Suspect]
     Active Substance: SORAFENIB
     Indication: HEPATOCELLULAR CARCINOMA
     Dosage: 200 MG, QD
     Route: 048
     Dates: start: 20171024
  2. NEXAVAR [Suspect]
     Active Substance: SORAFENIB
     Indication: HEPATOCELLULAR CARCINOMA
     Dosage: 200MG DAILY
     Route: 048

REACTIONS (17)
  - Thrombocytopenia [Recovered/Resolved]
  - Cough [None]
  - Sepsis [Recovered/Resolved]
  - Dyspnoea [None]
  - Hospitalisation [Not Recovered/Not Resolved]
  - Fatigue [None]
  - Platelet count decreased [None]
  - Pharyngeal haemorrhage [Recovered/Resolved]
  - Gastric infection [None]
  - Klebsiella test positive [None]
  - Peripheral swelling [None]
  - Dehydration [None]
  - Cystitis [None]
  - Gingival bleeding [None]
  - Hyperhidrosis [None]
  - Hot flush [None]
  - Asthenia [None]

NARRATIVE: CASE EVENT DATE: 201709
